FAERS Safety Report 5072394-8 (Version None)
Quarter: 2006Q3

REPORT INFORMATION
  Report Type: 
  Country: None (occurrence: None)
  Receive Date: 20060801
  Receipt Date: 20060727
  Transmission Date: 20061208
  Serious: Yes (Other)
  Sender: FDA-Public Use
  Company Number: 2006S1000148

PATIENT
  Age: 11 Day
  Sex: Female

DRUGS (4)
  1. INOMAX [Suspect]
     Indication: LUNG DISORDER
     Dosage: 5 PPM;CONT
     Route: 055
     Dates: start: 20060712
  2. INOMAX [Suspect]
     Indication: PROPHYLAXIS
     Dosage: 5 PPM;CONT
     Route: 055
     Dates: start: 20060712
  3. VANCOMYCIN [Concomitant]
  4. NETYLMYCIN [Concomitant]

REACTIONS (4)
  - DECREASED ACTIVITY [None]
  - INFANTILE APNOEIC ATTACK [None]
  - NEONATAL DISORDER [None]
  - STAPHYLOCOCCAL SEPSIS [None]
